FAERS Safety Report 8276115-7 (Version None)
Quarter: 2012Q2

REPORT INFORMATION
  Report Type: 
  Country: None (occurrence: None)
  Receive Date: 20120412
  Receipt Date: 20120406
  Transmission Date: 20120825
  Serious: Yes (Other)
  Sender: FDA-Public Use
  Company Number: JP-BAYER-2011-123634

PATIENT
  Age: 58 Year
  Sex: Male

DRUGS (3)
  1. ANTIINFLAMMATORY/ANTIRHEUMATIC NON-STEROIDS [Concomitant]
     Indication: CANCER PAIN
  2. PROTON PUMP INHIBITORS [Concomitant]
  3. NEXAVAR [Suspect]
     Indication: HEPATIC NEOPLASM MALIGNANT
     Dosage: 400 MG, QD
     Route: 048

REACTIONS (4)
  - GASTRIC ULCER [None]
  - OESOPHAGEAL VARICES HAEMORRHAGE [None]
  - FAECES DISCOLOURED [None]
  - IMPAIRED HEALING [None]
